FAERS Safety Report 16061938 (Version 1)
Quarter: 2019Q1

REPORT INFORMATION
  Report Type: Spontaneous
  Country: CA (occurrence: CA)
  Receive Date: 20190312
  Receipt Date: 20190312
  Transmission Date: 20190418
  Serious: Yes (Death, Hospitalization, Disabling, Other)
  Sender: FDA-Public Use
  Company Number: CA-PURDUE PHARMA-CAN-2019-0009750

PATIENT
  Age: 62 Year
  Sex: Female

DRUGS (8)
  1. OXYNEO [Suspect]
     Active Substance: OXYCODONE
     Indication: PRODUCT USED FOR UNKNOWN INDICATION
     Dosage: 10 MG, TID
     Route: 065
  2. ACETAMINOPHEN W/OXYCODONE [Concomitant]
     Active Substance: ACETAMINOPHEN\OXYCODONE HYDROCHLORIDE
     Indication: PRODUCT USED FOR UNKNOWN INDICATION
     Dosage: 5 MG, UNK
     Route: 065
  3. DIAZEPAM W/ISOPROPAMIDE IODIDE [Suspect]
     Active Substance: DIAZEPAM\ISOPROPAMIDE IODIDE
     Indication: PRODUCT USED FOR UNKNOWN INDICATION
     Dosage: UNK
     Route: 065
  4. SANDOSTATIN [Suspect]
     Active Substance: OCTREOTIDE ACETATE
     Indication: NEUROENDOCRINE TUMOUR
     Dosage: 30 MG, MONTHLY
     Route: 030
  5. OXYCONTIN [Concomitant]
     Active Substance: OXYCODONE HYDROCHLORIDE
     Indication: PRODUCT USED FOR UNKNOWN INDICATION
     Dosage: 10 MG, UNK
     Route: 065
  6. TYLENOL [Concomitant]
     Active Substance: ACETAMINOPHEN
     Indication: PRODUCT USED FOR UNKNOWN INDICATION
     Dosage: 325 MG, UNK
     Route: 005
  7. PERCOCET                           /00446701/ [Concomitant]
     Active Substance: ACETAMINOPHEN\OXYCODONE HYDROCHLORIDE\OXYCODONE TEREPHTHALATE
     Indication: PRODUCT USED FOR UNKNOWN INDICATION
     Dosage: UNK, BID
     Route: 065
  8. CYMBALTA [Concomitant]
     Active Substance: DULOXETINE HYDROCHLORIDE
     Indication: PRODUCT USED FOR UNKNOWN INDICATION
     Dosage: 30 MG, DAILY
     Route: 065

REACTIONS (41)
  - Lung neoplasm malignant [Fatal]
  - Axillary pain [Fatal]
  - Bone marrow failure [Fatal]
  - Platelet count decreased [Fatal]
  - Product quality issue [Fatal]
  - Abdominal pain upper [Fatal]
  - Cachexia [Fatal]
  - Rales [Fatal]
  - Blood pressure systolic increased [Fatal]
  - Body temperature decreased [Fatal]
  - Intestinal obstruction [Fatal]
  - Malaise [Fatal]
  - Musculoskeletal chest pain [Fatal]
  - Pallor [Fatal]
  - Respiratory rate increased [Fatal]
  - Needle issue [Fatal]
  - Sleep disorder [Fatal]
  - Vomiting [Fatal]
  - Diarrhoea [Fatal]
  - Fatigue [Fatal]
  - Feeling abnormal [Fatal]
  - General physical health deterioration [Fatal]
  - Muscle spasms [Fatal]
  - Walking disability [Fatal]
  - Death [Fatal]
  - Blood pressure diastolic decreased [Fatal]
  - Blood pressure increased [Fatal]
  - Decreased appetite [Fatal]
  - Pain [Fatal]
  - Pyrexia [Fatal]
  - Thyroid hormones increased [Fatal]
  - Urinary tract infection [Fatal]
  - Back pain [Fatal]
  - Pneumonia [Fatal]
  - Second primary malignancy [Fatal]
  - Stress [Fatal]
  - Wheezing [Fatal]
  - Septic shock [Fatal]
  - Asthenia [Fatal]
  - Haemoglobin decreased [Fatal]
  - Lung disorder [Fatal]
